FAERS Safety Report 13458661 (Version 1)
Quarter: 2017Q2

REPORT INFORMATION
  Report Type: Spontaneous
  Country: US (occurrence: US)
  Receive Date: 20170419
  Receipt Date: 20170419
  Transmission Date: 20170830
  Serious: No
  Sender: FDA-Public Use
  Company Number: US-OTSUKA-2017_001326

PATIENT
  Age: 45 Year
  Sex: Female

DRUGS (6)
  1. REXULTI [Suspect]
     Active Substance: BREXPIPRAZOLE
     Indication: BIPOLAR DISORDER
     Dosage: 1 MG, QD (1 IN 1 D)
     Route: 065
     Dates: start: 20160608, end: 201606
  2. REXULTI [Suspect]
     Active Substance: BREXPIPRAZOLE
     Indication: SCHIZOAFFECTIVE DISORDER
     Dosage: AT BED TIME (2 MG, 1 IN 1 D)
     Route: 065
     Dates: start: 20160711
  3. HALDOL [Suspect]
     Active Substance: HALOPERIDOL
     Dosage: 5 MG, QD (1 IN 1 D)
     Route: 065
     Dates: end: 2016
  4. HALDOL [Suspect]
     Active Substance: HALOPERIDOL
     Dosage: 5 MG, QD (AT BED TIME)
     Route: 065
  5. DEPAKOTE [Suspect]
     Active Substance: DIVALPROEX SODIUM
     Indication: PRODUCT USED FOR UNKNOWN INDICATION
     Dosage: UNK
     Route: 065
     Dates: start: 2016, end: 2016
  6. HALDOL [Suspect]
     Active Substance: HALOPERIDOL
     Indication: PRODUCT USED FOR UNKNOWN INDICATION
     Dosage: 10 MG, QD (1 IN 1 D)
     Route: 065

REACTIONS (2)
  - Soliloquy [Unknown]
  - Product use in unapproved indication [Unknown]

NARRATIVE: CASE EVENT DATE: 20160608
